FAERS Safety Report 10250830 (Version 1)
Quarter: 2014Q2

REPORT INFORMATION
  Report Type: Spontaneous
  Country: MX (occurrence: MX)
  Receive Date: 20140620
  Receipt Date: 20140620
  Transmission Date: 20141212
  Serious: Yes (Hospitalization)
  Sender: FDA-Public Use
  Company Number: MX-PFIZER INC-2014168746

PATIENT
  Sex: Female

DRUGS (1)
  1. ALTRULINE [Suspect]
     Dosage: UNK

REACTIONS (4)
  - Overdose [Unknown]
  - Hepatic enzyme abnormal [Unknown]
  - Blood electrolytes decreased [Unknown]
  - Blood bilirubin increased [Unknown]
